FAERS Safety Report 10232519 (Version 5)
Quarter: 2016Q4

REPORT INFORMATION
  Report Type: Spontaneous
  Country: US (occurrence: US)
  Receive Date: 20140612
  Receipt Date: 20161227
  Transmission Date: 20170206
  Serious: Yes (Other)
  Sender: FDA-Public Use
  Company Number: US-JNJFOC-20140606621

PATIENT
  Age: 10 Year
  Sex: Male

DRUGS (8)
  1. RISPERDAL [Suspect]
     Active Substance: RISPERIDONE
     Indication: SLEEP DISORDER
     Route: 048
     Dates: start: 20021108, end: 20030422
  2. RISPERDAL [Suspect]
     Active Substance: RISPERIDONE
     Indication: BIPOLAR DISORDER
     Route: 048
     Dates: start: 20021108, end: 20030422
  3. TRILEPTAL [Concomitant]
     Active Substance: OXCARBAZEPINE
     Indication: PRODUCT USED FOR UNKNOWN INDICATION
     Route: 065
  4. RISPERDAL [Suspect]
     Active Substance: RISPERIDONE
     Indication: SLEEP DISORDER
     Route: 048
     Dates: start: 20030423, end: 20030523
  5. RISPERDAL [Suspect]
     Active Substance: RISPERIDONE
     Indication: BIPOLAR DISORDER
     Route: 048
     Dates: start: 20030423, end: 20030523
  6. RISPERDAL [Suspect]
     Active Substance: RISPERIDONE
     Indication: ATTENTION DEFICIT/HYPERACTIVITY DISORDER
     Route: 048
     Dates: start: 20030423, end: 20030523
  7. CONCERTA [Suspect]
     Active Substance: METHYLPHENIDATE HYDROCHLORIDE
     Indication: PRODUCT USED FOR UNKNOWN INDICATION
     Dosage: VARYING DOSES OF 18-36 MG
     Route: 065
  8. RISPERDAL [Suspect]
     Active Substance: RISPERIDONE
     Indication: ATTENTION DEFICIT/HYPERACTIVITY DISORDER
     Route: 048
     Dates: start: 20021108, end: 20030422

REACTIONS (4)
  - Abnormal weight gain [Recovering/Resolving]
  - Gynaecomastia [Unknown]
  - Injury [Unknown]
  - Tardive dyskinesia [Unknown]

NARRATIVE: CASE EVENT DATE: 200211
